FAERS Safety Report 17116245 (Version 4)
Quarter: 2020Q2

REPORT INFORMATION
  Report Type: Spontaneous
  Country: DE (occurrence: DE)
  Receive Date: 20191205
  Receipt Date: 20200402
  Transmission Date: 20200713
  Serious: Yes (Hospitalization, Other)
  Sender: FDA-Public Use
  Company Number: DE-MYLANLABS-2019M1118660

PATIENT
  Sex: Female

DRUGS (20)
  1. VALSARTAN. [Suspect]
     Active Substance: VALSARTAN
     Dosage: 160 MG, UNK
     Route: 065
     Dates: start: 201906
  2. VALSARTAN HEXAL [Suspect]
     Active Substance: VALSARTAN
     Dosage: 320 MILLIGRAM, QD
     Route: 065
     Dates: end: 2018
  3. VALSARTAN 1A PHARMA [Suspect]
     Active Substance: VALSARTAN
     Indication: HYPERTENSION
     Dosage: 320 MG, QD (IN THE MORNINGS)
     Route: 065
     Dates: start: 2018, end: 2018
  4. BISOPROLOL [Concomitant]
     Active Substance: BISOPROLOL
     Indication: PRODUCT USED FOR UNKNOWN INDICATION
     Dosage: 5 OT TWICE DAILY (MORNING, EVENING), UNK
     Route: 065
  5. VALSARTAN. [Suspect]
     Active Substance: VALSARTAN
     Dosage: 80 MILLIGRAM, UNK
     Route: 065
     Dates: start: 20130223
  6. TAMOXIFEN ARISTO [Concomitant]
     Indication: PRODUCT USED FOR UNKNOWN INDICATION
     Dosage: 20 OT, UNK
     Route: 065
  7. BISOPROLOL [Concomitant]
     Active Substance: BISOPROLOL
     Dosage: UNK UNK, BID, 1 X 5, (MORNING, EVENING)
     Route: 065
  8. VALSARTAN. [Suspect]
     Active Substance: VALSARTAN
     Dosage: 160 MG, QD, MORNING
     Route: 065
  9. VALSARTAN. [Suspect]
     Active Substance: VALSARTAN
     Dosage: 320 MG, QD, 1 OT, IN THE MORNINGS
     Route: 065
     Dates: start: 2018
  10. EBRANTIL                           /00631801/ [Concomitant]
     Active Substance: URAPIDIL
     Dosage: 180 MILLIGRAM
     Route: 065
  11. EBRANTIL                           /00631801/ [Concomitant]
     Active Substance: URAPIDIL
     Indication: PRODUCT USED FOR UNKNOWN INDICATION
     Dosage: 120 MILLIGRAM, QD, (60 MG, BID, (MORNING, EVENING))
     Route: 065
  12. VALSARTAN AUROBINDO [Concomitant]
     Active Substance: VALSARTAN
     Indication: PRODUCT USED FOR UNKNOWN INDICATION
     Dosage: UNK
     Route: 065
  13. VALSARTAN HEXAL [Suspect]
     Active Substance: VALSARTAN
     Indication: HYPERTENSION
     Dosage: 160 MG, QD (IN THE MORNINGS)
     Route: 065
     Dates: start: 2012
  14. VALSARTAN. [Suspect]
     Active Substance: VALSARTAN
     Indication: PRODUCT USED FOR UNKNOWN INDICATION
     Dosage: 160 MG, QD, 1 OT, IN THE MORNINGS
     Route: 065
     Dates: start: 2012
  15. VALSARTAN. [Suspect]
     Active Substance: VALSARTAN
     Dosage: UNK UNK, QD, HALF A TABLET OF 160 MG, EVENING
     Route: 065
     Dates: start: 2018
  16. BISOPROLOL [Concomitant]
     Active Substance: BISOPROLOL
     Dosage: 10 MILLIGRAM
     Route: 065
  17. VALSARTAN 1A PHARMA [Suspect]
     Active Substance: VALSARTAN
     Dosage: 160 MG, QD (IN THE MORNINGS)
     Route: 065
     Dates: start: 2012
  18. PANTOPRAZOLE SODIUM. [Concomitant]
     Active Substance: PANTOPRAZOLE SODIUM
     Indication: PRODUCT USED FOR UNKNOWN INDICATION
     Dosage: UNK
     Route: 065
  19. EBRANTIL                           /00631801/ [Concomitant]
     Active Substance: URAPIDIL
     Indication: PRODUCT USED FOR UNKNOWN INDICATION
     Dosage: 90 OT, U
  20. IBUPROFENE [Concomitant]
     Active Substance: IBUPROFEN
     Indication: PRODUCT USED FOR UNKNOWN INDICATION
     Dosage: 800 MILLIGRAM, PRN, (800 MG, PRN (400-800 MG WHEN NEEDED))
     Route: 065

REACTIONS (40)
  - Hepatic steatosis [Unknown]
  - Mastitis [Recovering/Resolving]
  - Fibroadenoma of breast [Unknown]
  - Skin abrasion [Recovering/Resolving]
  - Adrenal adenoma [Unknown]
  - Enterobacter infection [Unknown]
  - Endometrial hyperplasia [Unknown]
  - Gastrooesophageal reflux disease [Unknown]
  - Fatigue [Unknown]
  - Dyspnoea [Unknown]
  - Hypoaesthesia [Unknown]
  - Spinal osteoarthritis [Unknown]
  - Tension [Unknown]
  - Haematoma [Unknown]
  - Pain in extremity [Recovering/Resolving]
  - Pulmonary fibrosis [Unknown]
  - Left atrial dilatation [Unknown]
  - Myalgia [Unknown]
  - Invasive ductal breast carcinoma [Unknown]
  - Abdominal discomfort [Unknown]
  - Amenorrhoea [Unknown]
  - Fall [Unknown]
  - Asthenia [Unknown]
  - Breast cancer [Unknown]
  - Diverticulum intestinal [Unknown]
  - Paraesthesia [Unknown]
  - Uterine leiomyoma [Recovered/Resolved]
  - Left ventricular hypertrophy [Unknown]
  - Bone pain [Recovering/Resolving]
  - Hepatomegaly [Unknown]
  - Skin hyperpigmentation [Unknown]
  - Postoperative wound infection [Recovering/Resolving]
  - Limb discomfort [Unknown]
  - Sensory loss [Unknown]
  - Erythema [Recovering/Resolving]
  - Ovarian cyst [Unknown]
  - Epistaxis [Unknown]
  - General physical health deterioration [Unknown]
  - Abdominal wall abscess [Unknown]
  - Skin texture abnormal [Unknown]

NARRATIVE: CASE EVENT DATE: 2016
